FAERS Safety Report 5196261-4 (Version None)
Quarter: 2007Q1

REPORT INFORMATION
  Report Type: 
  Country: None (occurrence: None)
  Receive Date: 20070102
  Receipt Date: 20061221
  Transmission Date: 20070707
  Serious: Yes (Disabling)
  Sender: FDA-Public Use
  Company Number: BR-PFIZER INC-2006145708

PATIENT
  Age: 30 Year
  Sex: Male

DRUGS (3)
  1. FELDENE [Suspect]
     Indication: BALANITIS
     Route: 061
     Dates: start: 20061101, end: 20061101
  2. DIPYRONE INJ [Concomitant]
     Indication: HEADACHE
  3. DIPYRONE INJ [Concomitant]
     Indication: SINUSITIS

REACTIONS (1)
  - OEDEMA GENITAL [None]
